FAERS Safety Report 8912190 (Version 3)
Quarter: 2012Q4

REPORT INFORMATION
  Report Type: Report from Study
  Country: US (occurrence: US)
  Receive Date: 20121115
  Receipt Date: 20121207
  Transmission Date: 20130627
  Serious: Yes (Other)
  Sender: FDA-Public Use
  Company Number: US-BAXTER-2012BAX023579

PATIENT
  Age: 55 Year
  Sex: Female
  Weight: 88.53 kg

DRUGS (3)
  1. GAMMAGARD LIQUID [Suspect]
     Indication: COMMON VARIABLE IMMUNODEFICIENCY
     Route: 058
     Dates: start: 20120824
  2. GAMMAGARD LIQUID [Suspect]
     Route: 058
  3. SYNTHROID [Concomitant]
     Indication: DRUG USE FOR UNKNOWN INDICATION

REACTIONS (9)
  - Infection [Recovered/Resolved]
  - Tooth infection [Recovered/Resolved]
  - Urinary tract infection [Recovered/Resolved]
  - Nasopharyngitis [Recovered/Resolved]
  - Skin infection [Recovered/Resolved]
  - Dermatitis [Recovered/Resolved]
  - Asthenia [Recovering/Resolving]
  - Eczema [Recovered/Resolved]
  - Dyspnoea [Not Recovered/Not Resolved]
